FAERS Safety Report 14207062 (Version 12)
Quarter: 2020Q2

REPORT INFORMATION
  Report Type: Spontaneous
  Country: JP (occurrence: JP)
  Receive Date: 20171121
  Receipt Date: 20200609
  Transmission Date: 20200713
  Serious: Yes (Hospitalization, Other)
  Sender: FDA-Public Use
  Company Number: JP-009507513-1711JPN001461J

PATIENT
  Age: 82 Year
  Sex: Male
  Weight: 61 kg

DRUGS (2)
  1. KEYTRUDA [Suspect]
     Active Substance: PEMBROLIZUMAB
     Indication: NON-SMALL CELL LUNG CANCER STAGE II
     Dosage: 200 MILLIGRAM, Q3W
     Route: 041
     Dates: start: 20170906, end: 20171021
  2. LIXIANA [Concomitant]
     Active Substance: EDOXABAN TOSYLATE
     Indication: ATRIAL FIBRILLATION
     Dosage: UNK
     Route: 048

REACTIONS (5)
  - Febrile neutropenia [Recovered/Resolved]
  - Cerebral infarction [Recovered/Resolved]
  - Agranulocytosis [Recovered/Resolved]
  - Lung disorder [Recovering/Resolving]
  - Ocular myasthenia [Unknown]

NARRATIVE: CASE EVENT DATE: 20171111
